FAERS Safety Report 10471299 (Version 5)
Quarter: 2015Q3

REPORT INFORMATION
  Report Type: Spontaneous
  Country: US (occurrence: US)
  Receive Date: 20140923
  Receipt Date: 20150731
  Transmission Date: 20151125
  Serious: Yes (Death, Hospitalization, Other)
  Sender: FDA-Public Use
  Company Number: US-MERCK-1409USA010727

PATIENT
  Sex: Male
  Weight: 88.6 kg

DRUGS (1)
  1. JANUVIA [Suspect]
     Active Substance: SITAGLIPTIN PHOSPHATE
     Indication: TYPE 2 DIABETES MELLITUS
     Dosage: 100 MG, QD
     Route: 048
     Dates: start: 20120615, end: 20121128

REACTIONS (6)
  - Anxiety [Unknown]
  - Pancreatic carcinoma metastatic [Fatal]
  - Stress [Unknown]
  - Hepatocellular carcinoma [Unknown]
  - Drug ineffective [Unknown]
  - Metastases to liver [Unknown]

NARRATIVE: CASE EVENT DATE: 20121025
